FAERS Safety Report 12188785 (Version 2)
Quarter: 2016Q1

REPORT INFORMATION
  Report Type: Spontaneous
  Country: US (occurrence: US)
  Receive Date: 20160317
  Receipt Date: 20160325
  Transmission Date: 20160526
  Serious: Yes (Hospitalization, Other)
  Sender: FDA-Public Use
  Company Number: US-TEVA-643523USA

PATIENT
  Sex: Female
  Weight: 56.3 kg

DRUGS (6)
  1. CELECOXIB. [Suspect]
     Active Substance: CELECOXIB
     Indication: MUSCLE RELAXANT THERAPY
     Dosage: 300 MILLIGRAM DAILY;
     Route: 048
     Dates: start: 1998, end: 2002
  2. CELECOXIB. [Suspect]
     Active Substance: CELECOXIB
     Indication: ARTHRITIS
  3. CELECOXIB. [Suspect]
     Active Substance: CELECOXIB
     Indication: OSTEOPOROSIS
  4. FLEXERIL [Suspect]
     Active Substance: CYCLOBENZAPRINE HYDROCHLORIDE
     Indication: MUSCLE RELAXANT THERAPY
     Dosage: 15 MILLIGRAM DAILY;
     Route: 048
     Dates: start: 1998, end: 2002
  5. FLEXERIL [Suspect]
     Active Substance: CYCLOBENZAPRINE HYDROCHLORIDE
     Indication: ARTHRITIS
     Dosage: 90 MILLIGRAM DAILY;
     Route: 048
     Dates: start: 1998, end: 2002
  6. FLEXERIL [Suspect]
     Active Substance: CYCLOBENZAPRINE HYDROCHLORIDE
     Indication: OSTEOPOROSIS

REACTIONS (3)
  - Drug ineffective [Unknown]
  - Drug effect decreased [Unknown]
  - Pneumonia [Recovered/Resolved]
